FAERS Safety Report 17414541 (Version 1)
Quarter: 2020Q1

REPORT INFORMATION
  Report Type: Spontaneous
  Country: JP (occurrence: JP)
  Receive Date: 20200213
  Receipt Date: 20200213
  Transmission Date: 20200409
  Serious: Yes (Hospitalization)
  Sender: FDA-Public Use
  Company Number: JP-RECORDATI RARE DISEASES-2080286

PATIENT
  Age: 21 Month
  Sex: Male
  Weight: 10.2 kg

DRUGS (6)
  1. FRESMIN S TAKEDA [Concomitant]
     Route: 058
  2. LAC-B GRANULAR POWDER N [Concomitant]
     Dates: start: 20170131
  3. CYSTADANE [Suspect]
     Active Substance: BETAINE
     Route: 048
     Dates: start: 20151222
  4. BIOTIN [Concomitant]
     Active Substance: BIOTIN
     Dates: start: 20151228
  5. CYSTADANE [Suspect]
     Active Substance: BETAINE
     Indication: HOMOCYSTINURIA
     Route: 048
     Dates: start: 20161004
  6. ELCARTIN [Concomitant]
     Route: 048
     Dates: end: 20171102

REACTIONS (2)
  - Pharyngitis [Recovering/Resolving]
  - Pharyngitis [Recovering/Resolving]

NARRATIVE: CASE EVENT DATE: 20170710
